FAERS Safety Report 11926208 (Version 2)
Quarter: 2016Q4

REPORT INFORMATION
  Report Type: Spontaneous
  Country: IE (occurrence: IE)
  Receive Date: 20160119
  Receipt Date: 20161025
  Transmission Date: 20170206
  Serious: Yes (Hospitalization, Other)
  Sender: FDA-Public Use
  Company Number: IE-BRISTOL-MYERS SQUIBB COMPANY-BMS-2016-000062

PATIENT
  Sex: Female

DRUGS (2)
  1. IRON [Concomitant]
     Active Substance: IRON
     Indication: PRODUCT USED FOR UNKNOWN INDICATION
     Route: 065
  2. HYDREA [Suspect]
     Active Substance: HYDROXYUREA
     Indication: PRODUCT USED FOR UNKNOWN INDICATION
     Dosage: 500 MG, UNK
     Route: 048
     Dates: start: 20150107

REACTIONS (7)
  - Prescribed underdose [Unknown]
  - Iron deficiency [Unknown]
  - Fatigue [Unknown]
  - Haemoglobin decreased [Unknown]
  - Skin ulcer [Unknown]
  - Transfusion [Unknown]
  - Oxygen saturation decreased [Unknown]
